FAERS Safety Report 10802011 (Version 3)
Quarter: 2015Q2

REPORT INFORMATION
  Report Type: Spontaneous
  Country: DK (occurrence: DK)
  Receive Date: 20150217
  Receipt Date: 20150529
  Transmission Date: 20150821
  Serious: Yes (Other)
  Sender: FDA-Public Use
  Company Number: DK-AUROBINDO-AUR-APL-2015-01236

PATIENT
  Age: 17 Year
  Sex: Female

DRUGS (11)
  1. FLUCONAZOLE. [Suspect]
     Active Substance: FLUCONAZOLE
     Indication: PRODUCT USED FOR UNKNOWN INDICATION
     Dosage: UNK
     Route: 065
  2. METHADONE [Interacting]
     Active Substance: METHADONE HYDROCHLORIDE
     Dosage: 24.8 MG/KG, DAILY
     Route: 042
  3. NORTRIPTYLINE [Interacting]
     Active Substance: NORTRIPTYLINE
     Indication: ANALGESIC THERAPY
     Dosage: 0.4 MG/KG/DOSE
     Route: 048
  4. AMITRIPTYLINE [Interacting]
     Active Substance: AMITRIPTYLINE
     Indication: ANALGESIC THERAPY
     Dosage: 0.9 MG/KG/DOSE
     Route: 048
  5. OXCARBAZEPINE. [Interacting]
     Active Substance: OXCARBAZEPINE
     Indication: ANALGESIC THERAPY
     Dosage: 8.8 MG/KG/DOSE, UNK
     Route: 048
  6. GABAPENTIN. [Interacting]
     Active Substance: GABAPENTIN
     Indication: ANALGESIC THERAPY
     Dosage: 9 MG/KG/DOSE
     Route: 048
  7. METHADONE [Interacting]
     Active Substance: METHADONE HYDROCHLORIDE
     Indication: NEURALGIA
     Dosage: 33 MG/KG, DAILY
     Route: 042
  8. METHADONE [Interacting]
     Active Substance: METHADONE HYDROCHLORIDE
     Indication: CANCER PAIN
     Dosage: 25 MG/KG, DAILY
     Route: 042
  9. METHADONE [Interacting]
     Active Substance: METHADONE HYDROCHLORIDE
     Indication: NEUROPATHY PERIPHERAL
     Dosage: 1.2 MG/KG, FOUR TIMES/DAY
     Route: 042
  10. METHADONE [Interacting]
     Active Substance: METHADONE HYDROCHLORIDE
     Dosage: }10 MG/KG, DAILY
     Route: 042
  11. METHADONE [Interacting]
     Active Substance: METHADONE HYDROCHLORIDE
     Dosage: 0.08-4.4 MG/KG, DAILY
     Route: 042

REACTIONS (6)
  - Electrocardiogram QT prolonged [Recovered/Resolved]
  - Toxicity to various agents [Unknown]
  - Depressed level of consciousness [Unknown]
  - Drug interaction [Unknown]
  - Hypotension [Unknown]
  - Adverse drug reaction [Unknown]
